FAERS Safety Report 5945951-1 (Version None)
Quarter: 2008Q4

REPORT INFORMATION
  Report Type: 
  Country: None (occurrence: None)
  Receive Date: 20081107
  Receipt Date: 20081107
  Transmission Date: 20090506
  Serious: No
  Sender: FDA-Public Use
  Company Number: None

PATIENT
  Age: 25 Year
  Sex: Female
  Weight: 49.8957 kg

DRUGS (1)
  1. SULFAMETHOXAZOLE AND TRIMETHOPRIM [Suspect]
     Indication: HORDEOLUM
     Dosage: TWO TABLETS BY MOUTH TWICE, DAILY PO
     Route: 048
     Dates: start: 20081028, end: 20081106

REACTIONS (7)
  - CHILLS [None]
  - HOT FLUSH [None]
  - INSOMNIA [None]
  - LOCAL SWELLING [None]
  - RASH GENERALISED [None]
  - RASH PRURITIC [None]
  - SWELLING FACE [None]
